FAERS Safety Report 24888316 (Version 1)
Quarter: 2025Q1

REPORT INFORMATION
  Report Type: Report from Study
  Country: US (occurrence: US)
  Receive Date: 20250127
  Receipt Date: 20250127
  Transmission Date: 20250409
  Serious: Yes (Hospitalization)
  Sender: Kenvue
  Company Number: US-KENVUE-20250107669

PATIENT
  Age: 27 Year
  Sex: Female

DRUGS (1)
  1. CLEAN AND CLEAR ESSENTIALS DUAL ACTION MOISTURIZER [Suspect]
     Active Substance: SALICYLIC ACID
     Indication: Product used for unknown indication
     Route: 061

REACTIONS (1)
  - Hospitalisation [Unknown]
